FAERS Safety Report 5087957-3 (Version None)
Quarter: 2006Q3

REPORT INFORMATION
  Report Type: 
  Country: None (occurrence: None)
  Receive Date: 20060822
  Receipt Date: 20060822
  Transmission Date: 20061208
  Serious: Yes (Other)
  Sender: FDA-Public Use
  Company Number: None

PATIENT
  Age: 64 Year
  Sex: Female

DRUGS (11)
  1. PHOSPHOSODA GINGER LEMON [Suspect]
     Indication: COLONOSCOPY
     Dosage: PO
     Route: 048
     Dates: start: 20060718, end: 20060719
  2. ASA (BAYER) [Concomitant]
  3. HUMULIN R + N [Concomitant]
  4. LIPITOR [Concomitant]
  5. AVANDAMET [Concomitant]
  6. CALCIUM GLUCONATE [Concomitant]
  7. ENABLEX [Concomitant]
  8. GLYCOLAR POWDER [Concomitant]
  9. TIMOLOL (TIMOLOL; TRICOR (FENOFIBRATE) [Concomitant]
  10. TYLENOL [Concomitant]
  11. VIT E + B 12 [Concomitant]

REACTIONS (6)
  - BLOOD CREATININE INCREASED [None]
  - CONVULSION [None]
  - DEHYDRATION [None]
  - DIZZINESS [None]
  - NAUSEA [None]
  - VOMITING [None]
